FAERS Safety Report 4332663-3 (Version None)
Quarter: 2004Q1

REPORT INFORMATION
  Report Type: 
  Country: None (occurrence: None)
  Receive Date: 20040330
  Receipt Date: 20040315
  Transmission Date: 20041129
  Serious: Yes (Life-Threatening)
  Sender: FDA-Public Use
  Company Number: 12523080

PATIENT
  Age: 69 Year
  Sex: Male

DRUGS (4)
  1. MIDODRINE HCL [Suspect]
     Indication: ORTHOSTATIC HYPOTENSION
     Dosage: 10 MG, 10 MG AND 5MG
     Route: 048
     Dates: start: 20030801
  2. FLORINEF [Concomitant]
  3. PREDNISOLONE [Concomitant]
  4. CARBIDOPA/LEVIDOPA [Concomitant]

REACTIONS (1)
  - CEREBRAL INFARCTION [None]
